FAERS Safety Report 18784326 (Version 1)
Quarter: 2021Q1

REPORT INFORMATION
  Report Type: Spontaneous
  Country: IT (occurrence: IT)
  Receive Date: 20210125
  Receipt Date: 20210125
  Transmission Date: 20210419
  Serious: Yes (Other)
  Sender: FDA-Public Use
  Company Number: IT-PFIZER INC-2021006415

PATIENT
  Age: 64 Year
  Sex: Male

DRUGS (4)
  1. PANALDINE [Interacting]
     Active Substance: TICLOPIDINE HYDROCHLORIDE
     Indication: FOCAL DYSCOGNITIVE SEIZURES
     Dosage: 250 MG/DAY
     Dates: start: 199501
  2. PHENYTOIN. [Interacting]
     Active Substance: PHENYTOIN
     Dosage: 200 MG, DAILY (2.8 MG/KG)
  3. PHENYTOIN. [Suspect]
     Active Substance: PHENYTOIN
     Indication: FOCAL DYSCOGNITIVE SEIZURES
     Dosage: 300 MG, DAILY (4.2 MG/KG)
  4. PHENYTOIN. [Interacting]
     Active Substance: PHENYTOIN
     Dosage: 250 MG, DAILY (3.5 MG/KG)

REACTIONS (7)
  - Neurotoxicity [Recovering/Resolving]
  - Drug interaction [Recovering/Resolving]
  - Drug level increased [Recovering/Resolving]
  - Vertigo [Recovering/Resolving]
  - Toxicity to various agents [Recovering/Resolving]
  - Ataxia [Recovering/Resolving]
  - Somnolence [Recovering/Resolving]
